FAERS Safety Report 23292014 (Version 1)
Quarter: 2023Q4

REPORT INFORMATION
  Report Type: Spontaneous
  Country: US (occurrence: US)
  Receive Date: 20231213
  Receipt Date: 20231213
  Transmission Date: 20240110
  Serious: Yes (Hospitalization)
  Sender: FDA-Public Use
  Company Number: US-INCYTE CORPORATION-2023IN012774

PATIENT

DRUGS (19)
  1. JAKAFI [Suspect]
     Active Substance: RUXOLITINIB
     Indication: Autoinflammatory disease
     Dosage: UNK
     Route: 065
  2. TOFACITINIB [Suspect]
     Active Substance: TOFACITINIB
     Indication: Autoinflammatory disease
     Dosage: UNK
     Route: 065
     Dates: start: 20230623, end: 20231025
  3. ANAKINRA [Suspect]
     Active Substance: ANAKINRA
     Indication: Autoinflammatory disease
     Dosage: 80 MILLIGRAM
     Route: 065
     Dates: start: 20230216
  4. ANAKINRA [Suspect]
     Active Substance: ANAKINRA
     Dosage: 100 MILLIGRAM, QD
     Route: 065
  5. ANAKINRA [Suspect]
     Active Substance: ANAKINRA
     Dosage: 100 MILLIGRAM, Q6H
     Route: 065
     Dates: start: 202310, end: 20231021
  6. METHYLPREDNISOLONE [Concomitant]
     Active Substance: METHYLPREDNISOLONE
     Indication: Autoinflammatory disease
     Dosage: 10 MILLIGRAM/KILOGRAM, BID
     Route: 042
     Dates: start: 20231020
  7. METHYLPREDNISOLONE [Concomitant]
     Active Substance: METHYLPREDNISOLONE
     Dosage: 30 MILLIGRAM/KILOGRAM, BID
     Route: 042
     Dates: start: 20231031
  8. METHYLPREDNISOLONE [Concomitant]
     Active Substance: METHYLPREDNISOLONE
     Dosage: 14 MILLIGRAM/KILOGRAM, BID
     Route: 042
     Dates: start: 20231124
  9. METHYLPREDNISOLONE [Concomitant]
     Active Substance: METHYLPREDNISOLONE
     Dosage: 4 MILLIGRAM/KILOGRAM, BID
     Route: 042
     Dates: start: 20231129
  10. CANAKINUMAB [Concomitant]
     Active Substance: CANAKINUMAB
     Indication: Autoinflammatory disease
     Dosage: UNK
     Route: 065
     Dates: start: 20230517
  11. IMMUNE GLOBULIN NOS [Concomitant]
     Active Substance: IMMUNE GLOBULIN NOS
     Indication: Autoinflammatory disease
     Dosage: 2/KG
     Route: 042
     Dates: start: 20231021
  12. BARICITINIB [Concomitant]
     Active Substance: BARICITINIB
     Indication: Autoinflammatory disease
     Dosage: 2 MILLIGRAM, BID
     Route: 065
     Dates: start: 20231025
  13. CYCLOSPORINE [Concomitant]
     Active Substance: CYCLOSPORINE
     Indication: Autoinflammatory disease
     Dosage: 1MG/KG DIV BID
     Route: 065
     Dates: start: 20231029
  14. CYCLOSPORINE [Concomitant]
     Active Substance: CYCLOSPORINE
     Dosage: 2MG/KG DIV BID
     Route: 065
     Dates: start: 20231101
  15. EMAPALUMAB [Concomitant]
     Active Substance: EMAPALUMAB
     Indication: Autoinflammatory disease
     Dosage: 10 MILLIGRAM/KILOGRAM
     Route: 065
     Dates: start: 20231116
  16. AZITHROMYCIN [Concomitant]
     Active Substance: AZITHROMYCIN
     Indication: Antibiotic prophylaxis
     Dosage: X5 DAYS
     Route: 065
  17. EPINEPHRINE [Concomitant]
     Active Substance: EPINEPHRINE
     Indication: Product used for unknown indication
     Dosage: UNK
     Route: 065
     Dates: start: 20231123, end: 20231125
  18. HYDROCORTISONE ACETATE [Concomitant]
     Active Substance: HYDROCORTISONE ACETATE
     Indication: Product used for unknown indication
     Dosage: UNK
     Dates: start: 20231124
  19. PENTAMIDINE [Concomitant]
     Active Substance: PENTAMIDINE
     Indication: Product used for unknown indication
     Route: 065

REACTIONS (5)
  - Autoinflammatory disease [Unknown]
  - Condition aggravated [Unknown]
  - Influenza [Unknown]
  - Otitis media [Unknown]
  - Off label use [Unknown]

NARRATIVE: CASE EVENT DATE: 20230101
